FAERS Safety Report 24308686 (Version 1)
Quarter: 2024Q3

REPORT INFORMATION
  Report Type: Spontaneous
  Country: US (occurrence: None)
  Receive Date: 20240910
  Receipt Date: 20240910
  Transmission Date: 20241016
  Serious: Yes (Hospitalization)
  Sender: Public
  Company Number: None

PATIENT
  Age: 22 Year
  Sex: Female
  Weight: 90.09 kg

DRUGS (13)
  1. CREON [Suspect]
     Active Substance: PANCRELIPASE AMYLASE\PANCRELIPASE LIPASE\PANCRELIPASE PROTEASE
     Indication: Pancreatic failure
     Dosage: OTHER FREQUENCY : 6 W/MEAL 3 W/SNACK;?
     Route: 048
  2. TRIKAFTA [Suspect]
     Active Substance: ELEXACAFTOR\IVACAFTOR\TEZACAFTOR
     Indication: Cystic fibrosis
     Dosage: OTHER FREQUENCY : 2QAM, 1QPM;?
     Route: 048
  3. Kitabis 300mg/5 ml NEBSOL [Concomitant]
  4. CLOBAZAM 10MG TABLETS [Concomitant]
  5. FLUOXETINE HYDROCHLORIDE [Concomitant]
     Active Substance: FLUOXETINE HYDROCHLORIDE
  6. GABAPENTIN [Concomitant]
     Active Substance: GABAPENTIN
  7. LEVETIRACETAM 1000MG TABLETS [Concomitant]
  8. MOTEGRITY 1MG TABLETS [Concomitant]
  9. OLANZAPINE [Concomitant]
     Active Substance: OLANZAPINE
  10. LAMOTRIGINE [Concomitant]
     Active Substance: LAMOTRIGINE
  11. SEASONIQUE TABLETS 91S [Concomitant]
  12. MAGNESIUM 200MG TABLETS [Concomitant]
  13. RIBOFLAVIN 400MG TABLETS [Concomitant]

REACTIONS (2)
  - Abdominal pain [None]
  - Hypertransaminasaemia [None]

NARRATIVE: CASE EVENT DATE: 20240805
